FAERS Safety Report 5087021-3 (Version None)
Quarter: 2006Q3

REPORT INFORMATION
  Report Type: 
  Country: None (occurrence: None)
  Receive Date: 20060821
  Receipt Date: 20060810
  Transmission Date: 20061208
  Serious: Yes (Hospitalization, Other)
  Sender: FDA-Public Use
  Company Number: A-CH2006-11832

PATIENT
  Age: 17 Year
  Sex: Male

DRUGS (1)
  1. TRACLEER [Suspect]
     Indication: PULMONARY HYPERTENSION
     Dosage: SEE  IMAGE
     Route: 048
     Dates: start: 20050101

REACTIONS (2)
  - CONDITION AGGRAVATED [None]
  - HYPERKALAEMIA [None]
